FAERS Safety Report 8775688 (Version 2)
Quarter: 2013Q4

REPORT INFORMATION
  Report Type: Spontaneous
  Country: US (occurrence: US)
  Receive Date: 20120909
  Receipt Date: 20131101
  Transmission Date: 20140711
  Serious: No
  Sender: FDA-Public Use
  Company Number: US-009507513-1208USA003459

PATIENT
  Sex: Female

DRUGS (4)
  1. PEG-INTRON [Suspect]
     Indication: HEPATITIS
     Dosage: UNK
     Dates: start: 20030101, end: 20030701
  2. PEG-INTRON [Suspect]
     Dosage: UNK
     Dates: start: 20120804
  3. REBETOL [Suspect]
     Indication: HEPATITIS C
     Dosage: UNK
     Dates: start: 20030101, end: 20030701
  4. REBETOL [Suspect]
     Dosage: UNK
     Dates: start: 20120804

REACTIONS (3)
  - Drug ineffective [Unknown]
  - Musculoskeletal chest pain [Unknown]
  - Influenza like illness [Unknown]
